FAERS Safety Report 7497622-0 (Version None)
Quarter: 2011Q2

REPORT INFORMATION
  Report Type: 
  Country: None (occurrence: None)
  Receive Date: 20110523
  Receipt Date: 20110507
  Transmission Date: 20111010
  Serious: No
  Sender: FDA-Public Use
  Company Number: US-B.I. PHARMACEUTICALS,INC./RIDGEFIELD-2011-BP-12579BP

PATIENT
  Sex: Female

DRUGS (5)
  1. ZANTAC 75 [Suspect]
     Indication: DYSPEPSIA
     Dosage: 75 MG
     Dates: start: 20110504
  2. ASPIRIN [Concomitant]
     Indication: PROPHYLAXIS
     Dosage: 81 MG
  3. EFFEXOR [Concomitant]
     Indication: ANTIDEPRESSANT THERAPY
  4. CALCIUM CARBONATE [Concomitant]
     Indication: PROPHYLAXIS
  5. MULTI-VITAMIN [Concomitant]
     Indication: PROPHYLAXIS

REACTIONS (1)
  - DYSPEPSIA [None]
